FAERS Safety Report 6877225 (Version 2)
Quarter: 2014Q2

REPORT INFORMATION
  Report Type: Report from Study
  Country: US (occurrence: US)
  Receive Date: 20090109
  Receipt Date: 20140523
  Transmission Date: 20141212
  Serious: Yes (Other)
  Sender: FDA-Public Use
  Company Number: US-PFIZER INC-2008158888

PATIENT
  Age: 42 Year
  Sex: Male
  Weight: 81.65 kg

DRUGS (1)
  1. VIAGRA [Suspect]
     Indication: ERECTILE DYSFUNCTION
     Dates: start: 2008, end: 2008

REACTIONS (3)
  - Penile curvature [Not Recovered/Not Resolved]
  - Spontaneous penile erection [Unknown]
  - Sexual dysfunction [Unknown]
